FAERS Safety Report 5011621-X (Version None)
Quarter: 2006Q2

REPORT INFORMATION
  Report Type: 
  Country: None (occurrence: None)
  Receive Date: 20060404
  Receipt Date: 20060120
  Transmission Date: 20061013
  Serious: No
  Sender: FDA-Public Use
  Company Number: US200601003711

PATIENT
  Age: 69 Year
  Sex: Female

DRUGS (4)
  1. CYMBALTA [Suspect]
     Indication: DEPRESSION
     Dosage: 60 MG
     Dates: start: 20051101
  2. LIPITOR [Concomitant]
  3. ALTACE [Concomitant]
  4. TOPROL-XL [Concomitant]

REACTIONS (6)
  - CONSTIPATION [None]
  - ERUCTATION [None]
  - FLATULENCE [None]
  - HYPERSOMNIA [None]
  - LETHARGY [None]
  - STOMACH DISCOMFORT [None]
